FAERS Safety Report 22104324 (Version 1)
Quarter: 2023Q1

REPORT INFORMATION
  Report Type: Spontaneous
  Country: US (occurrence: US)
  Receive Date: 20230316
  Receipt Date: 20230316
  Transmission Date: 20230417
  Serious: No
  Sender: FDA-Public Use
  Company Number: US-PFIZER INC-202300108414

PATIENT
  Age: 59 Year
  Sex: Female

DRUGS (3)
  1. IBRANCE [Suspect]
     Active Substance: PALBOCICLIB
     Dosage: 125 MG 21 DAYS ON 14 DAYS OFF
     Dates: start: 20221121
  2. IBRANCE [Suspect]
     Active Substance: PALBOCICLIB
     Dosage: 125 MG 21 DAYS ON 14 DAYS OFF
  3. IBRANCE [Suspect]
     Active Substance: PALBOCICLIB
     Dosage: 100 MG, DAILY
     Dates: start: 20230130

REACTIONS (2)
  - White blood cell count decreased [Recovering/Resolving]
  - Cough [Recovering/Resolving]
